FAERS Safety Report 24403544 (Version 1)
Quarter: 2024Q4

REPORT INFORMATION
  Report Type: Report from Study
  Country: US (occurrence: US)
  Receive Date: 20241007
  Receipt Date: 20241007
  Transmission Date: 20250115
  Serious: No
  Sender: ROCHE
  Company Number: US-ROCHE-3490819

PATIENT
  Age: 65 Year
  Sex: Male

DRUGS (2)
  1. GAZYVA [Suspect]
     Active Substance: OBINUTUZUMAB
     Indication: Haematuria
     Dosage: 100MG DAY 1, 900 MG DAY 2, 1000 MG DAY 15
     Route: 042
  2. GAZYVA [Suspect]
     Active Substance: OBINUTUZUMAB
     Indication: Glomerulonephritis

REACTIONS (2)
  - Off label use [Unknown]
  - No adverse event [Unknown]
